FAERS Safety Report 7207063-9 (Version None)
Quarter: 2011Q1

REPORT INFORMATION
  Report Type: 
  Country: None (occurrence: None)
  Receive Date: 20110103
  Receipt Date: 20101222
  Transmission Date: 20110831
  Serious: Yes (Hospitalization)
  Sender: FDA-Public Use
  Company Number: B0691471A

PATIENT
  Age: 10 Year
  Sex: Female
  Weight: 25 kg

DRUGS (2)
  1. VALPROATE SODIUM [Concomitant]
     Dosage: .5MG PER DAY
     Dates: start: 20101105
  2. LAMICTAL [Suspect]
     Indication: MENTAL RETARDATION
     Dosage: 12.5MG PER DAY
     Route: 048
     Dates: start: 20101105, end: 20101201

REACTIONS (10)
  - DERMATITIS EXFOLIATIVE GENERALISED [None]
  - STEVENS-JOHNSON SYNDROME [None]
  - PYREXIA [None]
  - RASH [None]
  - SKIN DISCOLOURATION [None]
  - MUCOSAL NECROSIS [None]
  - ERYTHEMA [None]
  - BLISTER [None]
  - SKIN NECROSIS [None]
  - COMA [None]
